FAERS Safety Report 18705781 (Version 1)
Quarter: 2021Q1

REPORT INFORMATION
  Report Type: Spontaneous
  Country: US (occurrence: US)
  Receive Date: 20210106
  Receipt Date: 20210106
  Transmission Date: 20210419
  Serious: No
  Sender: FDA-Public Use
  Company Number: US-BAYER-2021-008107

PATIENT
  Age: 82 Year
  Sex: Female

DRUGS (2)
  1. SELEXIPAG [Suspect]
     Active Substance: SELEXIPAG
     Indication: PULMONARY ARTERIAL HYPERTENSION
     Dosage: 1600 ?G, BID
     Route: 048
     Dates: start: 20200107
  2. ADEMPAS [Suspect]
     Active Substance: RIOCIGUAT
     Dosage: 1.5 MG, TID

REACTIONS (3)
  - Nausea [None]
  - Decreased appetite [None]
  - Constipation [None]

NARRATIVE: CASE EVENT DATE: 202012
